FAERS Safety Report 18790631 (Version 1)
Quarter: 2021Q1

REPORT INFORMATION
  Report Type: Spontaneous
  Country: CN (occurrence: CN)
  Receive Date: 20210126
  Receipt Date: 20210126
  Transmission Date: 20210419
  Serious: Yes (Death, Hospitalization, Other)
  Sender: FDA-Public Use
  Company Number: CN-LUPIN PHARMACEUTICALS INC.-2021-00539

PATIENT
  Age: 55 Year
  Sex: Female

DRUGS (5)
  1. METHYLPREDNISOLONE. [Suspect]
     Active Substance: METHYLPREDNISOLONE
     Indication: SJOGREN^S SYNDROME
     Dosage: 24 MILLIGRAM, QD
     Route: 048
  2. METHYLPREDNISOLONE. [Suspect]
     Active Substance: METHYLPREDNISOLONE
     Dosage: 10 MILLIGRAM, QD
     Route: 048
  3. CEFTRIAXONE. [Concomitant]
     Active Substance: CEFTRIAXONE
     Indication: ANTIBIOTIC THERAPY
     Dosage: 2 GRAM
     Route: 065
  4. MANNITOL. [Concomitant]
     Active Substance: MANNITOL
     Indication: INTRACRANIAL PRESSURE INCREASED
     Dosage: UNK
     Route: 065
  5. VANCOMYCIN [Concomitant]
     Active Substance: VANCOMYCIN
     Indication: ANTIBIOTIC THERAPY
     Dosage: 1 GRAM
     Route: 065

REACTIONS (6)
  - Central nervous system infection [Fatal]
  - Otitis media acute [Unknown]
  - Klebsiella infection [Fatal]
  - Mastoiditis [Unknown]
  - Meningitis bacterial [Fatal]
  - Brain abscess [Fatal]
